FAERS Safety Report 24017924 (Version 1)
Quarter: 2024Q2

REPORT INFORMATION
  Report Type: Spontaneous
  Country: US (occurrence: None)
  Receive Date: 20240627
  Receipt Date: 20240627
  Transmission Date: 20240715
  Serious: Yes (Other)
  Sender: FDA-Public Use
  Company Number: 2024A145190

PATIENT
  Sex: Male

DRUGS (3)
  1. IMFINZI [Suspect]
     Active Substance: DURVALUMAB
     Route: 042
  2. GEM [Concomitant]
  3. CIS [Concomitant]

REACTIONS (2)
  - Hypoxia [Unknown]
  - Disease progression [Unknown]
